FAERS Safety Report 5253364-3 (Version None)
Quarter: 2007Q1

REPORT INFORMATION
  Report Type: 
  Country: None (occurrence: None)
  Receive Date: 20061201
  Receipt Date: 20060828
  Transmission Date: 20070707
  Serious: No
  Sender: FDA-Public Use
  Company Number: 2006PV020306

PATIENT
  Age: 42 Year
  Sex: Female
  Weight: 132.4503 kg

DRUGS (4)
  1. BYETTA [Suspect]
     Indication: DIABETES MELLITUS NON-INSULIN-DEPENDENT
     Dosage: 5 MCG; BID; SC
     Route: 058
     Dates: start: 20060501, end: 20060601
  2. AMARYL [Suspect]
     Dosage: 4 MG; 2 MG; QD
     Dates: start: 20060501, end: 20060501
  3. AMARYL [Suspect]
     Dosage: 4 MG; 2 MG; QD
     Dates: start: 20060501, end: 20060601
  4. AMARYL [Suspect]
     Dosage: 4 MG; 2 MG; QD
     Dates: start: 20060601

REACTIONS (4)
  - BLOOD GLUCOSE ABNORMAL [None]
  - BLOOD GLUCOSE DECREASED [None]
  - BLOOD GLUCOSE INCREASED [None]
  - DRUG INEFFECTIVE FOR UNAPPROVED INDICATION [None]
